FAERS Safety Report 15769221 (Version 3)
Quarter: 2019Q1

REPORT INFORMATION
  Report Type: Spontaneous
  Country: US (occurrence: US)
  Receive Date: 20181228
  Receipt Date: 20190122
  Transmission Date: 20190417
  Serious: No
  Sender: FDA-Public Use
  Company Number: US-009507513-1812USA010770

PATIENT
  Sex: Male

DRUGS (2)
  1. ASMANEX HFA [Suspect]
     Active Substance: MOMETASONE FUROATE
     Dosage: STRENGTH: ALSO REPORTED AS 120 DOSE, UNK
  2. ASMANEX HFA [Suspect]
     Active Substance: MOMETASONE FUROATE
     Dosage: STRENGTH: ALSO REPORTED AS 120 DOSE, UNK

REACTIONS (3)
  - Incorrect dose administered [Unknown]
  - Product use issue [Unknown]
  - Product quality issue [Unknown]
